FAERS Safety Report 7860688-X (Version None)
Quarter: 2011Q4

REPORT INFORMATION
  Report Type: 
  Country: None (occurrence: None)
  Receive Date: 20111027
  Receipt Date: 20111019
  Transmission Date: 20120403
  Serious: Yes (Other)
  Sender: FDA-Public Use
  Company Number: DE-AMGEN-DEUSP2011053943

PATIENT
  Age: 72 Year
  Sex: Female

DRUGS (5)
  1. CORTISONE ACETATE [Concomitant]
     Dosage: 5 MG, QD
     Dates: start: 20061101
  2. PROLIA [Suspect]
     Indication: OSTEOPOROSIS
     Dosage: 60 MG, UNK
     Route: 058
     Dates: start: 20101125, end: 20110525
  3. TRAMADOL HCL [Concomitant]
     Indication: PAIN
     Dosage: 50 MG, UNK
     Route: 048
     Dates: start: 20110525, end: 20110525
  4. OMEPRAZOLE [Concomitant]
     Indication: PROPHYLAXIS
     Dosage: UNK
     Route: 048
     Dates: start: 20110616, end: 20110616
  5. IBUBETA [Concomitant]
     Indication: PAIN
     Dosage: UNK
     Route: 048
     Dates: start: 20110616, end: 20110616

REACTIONS (2)
  - PAIN [None]
  - AMYOTROPHIC LATERAL SCLEROSIS [None]
